FAERS Safety Report 13905690 (Version 1)
Quarter: 2017Q3

REPORT INFORMATION
  Report Type: Spontaneous
  Country: US (occurrence: None)
  Receive Date: 20170821
  Receipt Date: 20170821
  Transmission Date: 20171127
  Serious: Yes (Hospitalization)
  Sender: FDA-Public Use
  Company Number: None

PATIENT
  Age: 52 Year
  Sex: Male

DRUGS (1)
  1. IBUPROFEN. [Suspect]
     Active Substance: IBUPROFEN
     Indication: PAIN
     Route: 048
     Dates: start: 20020218, end: 20170730

REACTIONS (5)
  - Diarrhoea [None]
  - Upper gastrointestinal haemorrhage [None]
  - Abdominal pain [None]
  - Haematemesis [None]
  - Gastric haemorrhage [None]

NARRATIVE: CASE EVENT DATE: 20170730
